FAERS Safety Report 5275995-7 (Version None)
Quarter: 2007Q1

REPORT INFORMATION
  Report Type: 
  Country: None (occurrence: None)
  Receive Date: 20070326
  Receipt Date: 20070321
  Transmission Date: 20070707
  Serious: Yes (Death, Hospitalization)
  Sender: FDA-Public Use
  Company Number: FR-BAXTER-2006BH015300

PATIENT
  Age: 62 Year
  Sex: Female
  Weight: 71 kg

DRUGS (5)
  1. HUMAN ALBUMIN IMMUNO 20% [Suspect]
     Indication: DRUG USE FOR UNKNOWN INDICATION
     Route: 042
     Dates: start: 20060513, end: 20060516
  2. HUMAN ALBUMIN IMMUNO 20% [Suspect]
     Route: 042
     Dates: start: 20060513, end: 20060516
  3. IVEEGAM [Suspect]
     Indication: DRUG USE FOR UNKNOWN INDICATION
     Route: 042
     Dates: start: 20060512, end: 20060515
  4. DEROXAT [Suspect]
     Indication: DRUG USE FOR UNKNOWN INDICATION
     Route: 048
     Dates: start: 20060513, end: 20060515
  5. PROGRAF [Suspect]
     Indication: TRANSPLANT REJECTION
     Route: 048
     Dates: end: 20060516

REACTIONS (5)
  - CACHEXIA [None]
  - COMA [None]
  - CONVULSION [None]
  - MULTI-ORGAN FAILURE [None]
  - POSTOPERATIVE RENAL FAILURE [None]
